FAERS Safety Report 14964301 (Version 2)
Quarter: 2018Q3

REPORT INFORMATION
  Report Type: Spontaneous
  Country: US (occurrence: US)
  Receive Date: 20180601
  Receipt Date: 20180907
  Transmission Date: 20181010
  Serious: No
  Sender: FDA-Public Use
  Company Number: US-ASTRAZENECA-2018SE60483

PATIENT
  Sex: Male

DRUGS (3)
  1. IPRATROPIUM ALBUTEROL [Concomitant]
     Active Substance: ALBUTEROL\IPRATROPIUM
  2. ADVAIR HFA [Concomitant]
     Active Substance: FLUTICASONE PROPIONATE\SALMETEROL XINAFOATE
  3. SYMBICORT [Suspect]
     Active Substance: BUDESONIDE\FORMOTEROL FUMARATE DIHYDRATE
     Dosage: UNKNOWN UNKNOWN
     Route: 055

REACTIONS (8)
  - Tourette^s disorder [Unknown]
  - Anger [Unknown]
  - Dysgeusia [Unknown]
  - Malaise [Unknown]
  - Feeling abnormal [Unknown]
  - Asthma [Unknown]
  - Panic attack [Unknown]
  - Muscle twitching [Unknown]
